FAERS Safety Report 21760491 (Version 1)
Quarter: 2022Q4

REPORT INFORMATION
  Report Type: Spontaneous
  Country: US (occurrence: None)
  Receive Date: 20221220
  Receipt Date: 20221220
  Transmission Date: 20230112
  Serious: Yes (Hospitalization)
  Sender: FDA-Public Use
  Company Number: None

PATIENT
  Age: 79 Year
  Sex: Male
  Weight: 89.55 kg

DRUGS (2)
  1. MICAFUNGIN [Suspect]
     Active Substance: MICAFUNGIN
     Indication: Acute myeloid leukaemia
     Dosage: 200 MG TWICE WEEKLY INTRAVENOUS?
     Route: 042
     Dates: start: 20221117, end: 20221208
  2. MICAFUNGIN [Suspect]
     Active Substance: MICAFUNGIN
     Indication: Prophylaxis

REACTIONS (7)
  - Seizure [None]
  - Unresponsive to stimuli [None]
  - Oxygen saturation decreased [None]
  - Blood pressure increased [None]
  - Blood glucose increased [None]
  - Heart rate increased [None]
  - Blood magnesium decreased [None]

NARRATIVE: CASE EVENT DATE: 20221130
